FAERS Safety Report 7759677-5 (Version None)
Quarter: 2011Q3

REPORT INFORMATION
  Report Type: 
  Country: None (occurrence: None)
  Receive Date: 20110915
  Receipt Date: 20110830
  Transmission Date: 20111222
  Serious: Yes (Death, Hospitalization, Other)
  Sender: FDA-Public Use
  Company Number: 2011MA012800

PATIENT
  Age: 16 Year
  Sex: Female

DRUGS (12)
  1. GEMCITABINE HYDROCHLORIDE [Suspect]
     Dosage: 1000 MG/M2 0.5 H;IV
     Route: 042
  2. TROPISETRON HYDROCHLORIDE (TROPISETRON HYDROCHLORIDE) [Suspect]
     Indication: PROPHYLAXIS OF NAUSEA AND VOMITING
     Dosage: 0.2 MG/KG;IV
     Route: 042
  3. SODIUM CHLORIDE 0.9% [Suspect]
     Indication: PROPHYLAXIS
     Dosage: 0.45 % 3L/M2/D;QH;IV
     Route: 042
  4. DIMENHYDRINATE [Suspect]
     Indication: PROPHYLAXIS OF NAUSEA AND VOMITING
     Dosage: 2 MG/KG/DOSE; IV
     Route: 042
  5. AMPHOTERICIN B [Suspect]
     Indication: FUNGAL INFECTION
     Dosage: 4 X 2 ML/D; PO
     Route: 048
  6. TRIMETHOPRIM [Suspect]
     Indication: PNEUMOCYSTIS JIROVECI PNEUMONIA
     Dosage: 5 MG/KG/BID 3 DAYS/WEEK;
  7. LOPERAMIDE [Suspect]
     Indication: CHOLINERGIC SYNDROME
     Dosage: 2 MG; PO
     Route: 048
  8. SULFONAMIDE (NO PREF. NAME) [Suspect]
     Indication: PNEUMOCYSTIS JIROVECI PNEUMONIA
     Dosage: 5 MG/KG/BID 3 DAYS/WEEK;
  9. IRINOTECAN HCL [Suspect]
     Indication: DESMOPLASTIC SMALL ROUND CELL TUMOUR
     Dosage: 175 MG/M2/2H; IV
     Route: 042
  10. OXALIPLATIN [Suspect]
     Indication: DESMOPLASTIC SMALL ROUND CELL TUMOUR
     Dosage: 85 MG/M2/2H; IV
     Route: 042
  11. ONDANSETRON [Suspect]
     Dosage: 5 MG/M2; IV
     Route: 042
  12. DEXTROSE 5% [Suspect]
     Indication: PROPHYLAXIS
     Dosage: 5 % 3L/M2/D;QH;IV
     Route: 042

REACTIONS (1)
  - THROMBOCYTOPENIA [None]
